FAERS Safety Report 9025331 (Version 2)
Quarter: 2013Q1

REPORT INFORMATION
  Report Type: Spontaneous
  Country: DE (occurrence: DE)
  Receive Date: 20121211
  Receipt Date: 20130219
  Transmission Date: 20140127
  Serious: Yes (Hospitalization, Other)
  Sender: FDA-Public Use
  Company Number: PHHY2012DE112970

PATIENT
  Sex: Male

DRUGS (5)
  1. CO-DIOVAN [Suspect]
     Dosage: UNK UKN, UNK
     Dates: start: 1998, end: 2012
  2. CO-DIOVAN [Suspect]
     Dosage: UNK UKN, UNK
     Dates: start: 20130213
  3. VALSARTAN [Suspect]
     Dosage: 0.5 DF (80 MG), QD
  4. FUROSEMIDE [Concomitant]
     Dates: start: 2012
  5. HCT [Concomitant]
     Dosage: 25 MG, UNK
     Dates: start: 20130213

REACTIONS (2)
  - Myocardial infarction [Recovering/Resolving]
  - Tinnitus [Recovering/Resolving]
